FAERS Safety Report 7450096-8 (Version None)
Quarter: 2011Q2

REPORT INFORMATION
  Report Type: 
  Country: None (occurrence: None)
  Receive Date: 20110428
  Receipt Date: 20110428
  Transmission Date: 20111010
  Serious: No
  Sender: FDA-Public Use
  Company Number: None

PATIENT
  Sex: Male

DRUGS (1)
  1. REBIF [Suspect]
     Dosage: INJECT 44MCG (0.5ML) SUBCUTANEOUSLY THREE TIMES A WEEK
     Route: 058

REACTIONS (1)
  - INFLUENZA LIKE ILLNESS [None]
